FAERS Safety Report 15475991 (Version 10)
Quarter: 2022Q1

REPORT INFORMATION
  Report Type: Spontaneous
  Country: GB (occurrence: GB)
  Receive Date: 20181009
  Receipt Date: 20220218
  Transmission Date: 20220423
  Serious: Yes (Other)
  Sender: FDA-Public Use
  Company Number: PHHY2018GB118953

PATIENT
  Sex: Female

DRUGS (14)
  1. TRAMADOL [Suspect]
     Active Substance: TRAMADOL
     Indication: Pain
     Dosage: 8 DOSAGE FORM, QD (2 DF, 4/DAY IN 1ST TRIMESTER)
     Route: 048
  2. TRAMADOL [Suspect]
     Active Substance: TRAMADOL
     Dosage: 2 DF, QID IN 1ST TRIMESTER
     Route: 048
  3. TRAMADOL [Suspect]
     Active Substance: TRAMADOL
     Dosage: 2 DOSAGE FORM, QID (2 DOSAGE FORM, 4/DAY)
     Route: 048
  4. TRAMADOL [Suspect]
     Active Substance: TRAMADOL
     Dosage: 2 DOSAGE FORM, QD (2 DOSAGE FORM, 1/DAY)
     Route: 048
  5. FENTANYL [Suspect]
     Active Substance: FENTANYL
     Indication: Pain
     Dosage: UNK ( IN 1ST TRIMESTER)
     Route: 062
  6. FENTANYL [Suspect]
     Active Substance: FENTANYL
     Dosage: UNK ( IN 1ST TRIMESTER)
     Route: 062
  7. COCODAMOL [Suspect]
     Active Substance: ACETAMINOPHEN\CODEINE PHOSPHATE
     Indication: Pain
     Dosage: 8 DOSAGE FORM, QD ((2 DF, 4/DAY) IN 1ST TRIMESTER
     Route: 048
  8. COCODAMOL [Suspect]
     Active Substance: ACETAMINOPHEN\CODEINE PHOSPHATE
     Dosage: 2 DF, DAILY (2 DOSAGE FORM, 1/DAY) IN 1ST TRIMESTER
     Route: 048
  9. COCODAMOL [Suspect]
     Active Substance: ACETAMINOPHEN\CODEINE PHOSPHATE
     Dosage: 2 DOSAGE FORM, QID (2 DOSAGE FORM, FOUR TIMES/DAY (8 DOSAGE FORM ONCE A DAY)
     Route: 048
  10. COCODAMOL [Suspect]
     Active Substance: ACETAMINOPHEN\CODEINE PHOSPHATE
     Dosage: UNK
     Route: 048
  11. COCODAMOL [Suspect]
     Active Substance: ACETAMINOPHEN\CODEINE PHOSPHATE
     Dosage: 2 DOSAGE FORM, QD
     Route: 048
  12. ACETAMINOPHEN [Suspect]
     Active Substance: ACETAMINOPHEN
     Indication: Pain
     Dosage: 8 DF, QD (2 DF, 4/DAY) IN 1ST TRIMESTER)
     Route: 048
  13. ACETAMINOPHEN [Suspect]
     Active Substance: ACETAMINOPHEN
     Dosage: UNK
     Route: 048
  14. DURAGESIC [Suspect]
     Active Substance: FENTANYL
     Indication: Pain
     Dosage: UNK (TRANSDERMAL PATCH)
     Route: 065

REACTIONS (10)
  - Amnesia [Recovered/Resolved]
  - Body dysmorphic disorder [Recovered/Resolved]
  - Crying [Recovered/Resolved]
  - Somnolence [Recovered/Resolved]
  - Withdrawal syndrome [Recovered/Resolved]
  - Drug ineffective [Unknown]
  - Maternal exposure during pregnancy [Recovered/Resolved]
  - Drug abuse [Unknown]
  - Nausea [Recovered/Resolved]
  - Dependence [Recovered/Resolved]
